FAERS Safety Report 8597433-9 (Version None)
Quarter: 2012Q3

REPORT INFORMATION
  Report Type: 
  Country: None (occurrence: None)
  Receive Date: 20120816
  Receipt Date: 20120806
  Transmission Date: 20120928
  Serious: Yes (Hospitalization)
  Sender: FDA-Public Use
  Company Number: JP-JNJFOC-20120707820

PATIENT
  Sex: Male
  Weight: 58 kg

DRUGS (16)
  1. SIMPONI [Suspect]
     Route: 058
     Dates: start: 20111109
  2. MEDROL [Concomitant]
     Indication: RHEUMATOID ARTHRITIS
     Route: 048
     Dates: start: 20120229
  3. RABEPRAZOLE SODIUM [Concomitant]
     Indication: PROPHYLAXIS
     Route: 048
  4. SIMPONI [Suspect]
     Route: 058
     Dates: start: 20111209
  5. PREDNISOLONE [Concomitant]
     Indication: RHEUMATOID ARTHRITIS
     Route: 048
     Dates: start: 20110907, end: 20110930
  6. ALL OTHER THERAPEUTIC PRODUCTS [Concomitant]
     Route: 048
  7. PREDNISOLONE [Concomitant]
     Route: 048
     Dates: start: 20111031, end: 20111106
  8. BETAMETHASONE [Concomitant]
     Indication: RHEUMATOID ARTHRITIS
     Route: 048
     Dates: start: 20111107, end: 20120117
  9. AMARYL [Concomitant]
     Route: 048
  10. SIMPONI [Suspect]
     Route: 058
     Dates: start: 20120314
  11. SIMPONI [Suspect]
     Route: 058
     Dates: start: 20120215
  12. SIMPONI [Suspect]
     Indication: RHEUMATOID ARTHRITIS
     Route: 058
     Dates: start: 20120104
  13. ASPIRIN [Concomitant]
     Route: 065
  14. BETAMETHASONE [Concomitant]
     Route: 048
     Dates: start: 20120215
  15. SIMPONI [Suspect]
     Route: 058
     Dates: start: 20111005
  16. BETAMETHASONE [Concomitant]
     Route: 048
     Dates: start: 20120118, end: 20120214

REACTIONS (1)
  - TUBERCULOSIS [None]
